FAERS Safety Report 16066617 (Version 1)
Quarter: 2019Q2

REPORT INFORMATION
  Report Type: Spontaneous
  Country: US (occurrence: US)
  Receive Date: 20190313
  Receipt Date: 20190313
  Transmission Date: 20190711
  Serious: Yes (Life-Threatening, Hospitalization, Disabling, Other)
  Sender: FDA-Public Use
  Company Number: None

PATIENT
  Age: 63 Year
  Sex: Female
  Weight: 90 kg

DRUGS (19)
  1. TOVIAZ [Concomitant]
     Active Substance: FESOTERODINE FUMARATE
  2. IRON SUPPLEMENTS [Concomitant]
     Active Substance: IRON
  3. NITROGLYCERIN. [Concomitant]
     Active Substance: NITROGLYCERIN
  4. IMDUR [Concomitant]
     Active Substance: ISOSORBIDE MONONITRATE
  5. CARVEDILOL. [Concomitant]
     Active Substance: CARVEDILOL
  6. GLIPIZIDE. [Concomitant]
     Active Substance: GLIPIZIDE
  7. AMLODIPNE [Concomitant]
  8. REMERON [Concomitant]
     Active Substance: MIRTAZAPINE
  9. SYNTHROID [Concomitant]
     Active Substance: LEVOTHYROXINE SODIUM
  10. FOLIC ACID. [Concomitant]
     Active Substance: FOLIC ACID
  11. SEROQUEL [Concomitant]
     Active Substance: QUETIAPINE FUMARATE
  12. FETZIMA [Concomitant]
     Active Substance: LEVOMILNACIPRAN HYDROCHLORIDE
  13. LOSARTAN. [Concomitant]
     Active Substance: LOSARTAN
  14. NEURONTIN [Concomitant]
     Active Substance: GABAPENTIN
  15. ZANAFLEX [Concomitant]
     Active Substance: TIZANIDINE HYDROCHLORIDE
  16. METHADONE [Concomitant]
     Active Substance: METHADONE HYDROCHLORIDE
  17. KLONOPIN [Concomitant]
     Active Substance: CLONAZEPAM
  18. HYDROXYCHLOROQUINE [Concomitant]
     Active Substance: HYDROXYCHLOROQUINE
  19. METHOTREXATE 50MG/2ML VIAL [Suspect]
     Active Substance: METHOTREXATE SODIUM
     Indication: RHEUMATOID ARTHRITIS
     Dosage: ?          OTHER FREQUENCY:EVERY SUNDAY;?
     Route: 030
     Dates: start: 20161201, end: 20190310

REACTIONS (16)
  - Weight decreased [None]
  - Burning sensation [None]
  - Fall [None]
  - Confusional state [None]
  - Depression [None]
  - Dyspnoea [None]
  - Organ failure [None]
  - Faeces discoloured [None]
  - Panic attack [None]
  - Paraesthesia [None]
  - Visual impairment [None]
  - Cognitive disorder [None]
  - Gastrooesophageal reflux disease [None]
  - Neuropathy peripheral [None]
  - Hypoaesthesia [None]
  - Drug ineffective [None]

NARRATIVE: CASE EVENT DATE: 20170101
